FAERS Safety Report 5509494-1 (Version None)
Quarter: 2007Q4

REPORT INFORMATION
  Report Type: 
  Country: None (occurrence: None)
  Receive Date: 20071106
  Receipt Date: 20071026
  Transmission Date: 20080405
  Serious: Yes (Other)
  Sender: FDA-Public Use
  Company Number: 2007US002673

PATIENT
  Age: 87 Year
  Sex: Female

DRUGS (4)
  1. VESICARE [Suspect]
     Indication: POLLAKIURIA
     Dosage: 5 MG, ORAL
     Route: 048
     Dates: start: 20070901, end: 20071026
  2. LISINOPRIL [Concomitant]
  3. LEVOTHYROXINE SODIUM [Concomitant]
  4. TYLENOL (CAPLET) [Concomitant]

REACTIONS (2)
  - HALLUCINATION [None]
  - HYDROCEPHALUS [None]
